FAERS Safety Report 15787096 (Version 7)
Quarter: 2023Q4

REPORT INFORMATION
  Report Type: Report from Study
  Country: BR (occurrence: BR)
  Receive Date: 20190103
  Receipt Date: 20231012
  Transmission Date: 20240109
  Serious: Yes (Life-Threatening, Hospitalization)
  Sender: FDA-Public Use
  Company Number: BR-BRISTOL-MYERS SQUIBB COMPANY-BMS-2018-123041

PATIENT
  Age: 71 Year
  Sex: Male
  Weight: 96 kg

DRUGS (12)
  1. NIVOLUMAB [Suspect]
     Active Substance: NIVOLUMAB
     Indication: Prostate cancer
     Dosage: MG
     Dates: start: 20181114, end: 20181114
  2. NIVOLUMAB [Suspect]
     Active Substance: NIVOLUMAB
     Dosage: MG
     Dates: start: 20181212, end: 20181212
  3. ENZALUTAMIDE [Suspect]
     Active Substance: ENZALUTAMIDE
     Indication: Prostate cancer
     Dosage: MG
     Dates: start: 20181114, end: 20181114
  4. ENZALUTAMIDE [Suspect]
     Active Substance: ENZALUTAMIDE
     Dosage: MG
     Dates: start: 20181214, end: 20190110
  5. PANTOPRAZOLE [Concomitant]
     Active Substance: PANTOPRAZOLE
     Indication: Product used for unknown indication
     Route: 048
     Dates: start: 2008, end: 20181227
  6. PANTOPRAZOLE [Concomitant]
     Active Substance: PANTOPRAZOLE
     Route: 042
     Dates: start: 20181227, end: 20181228
  7. COLAGEN [Concomitant]
     Indication: Product used for unknown indication
     Route: 048
     Dates: start: 2008
  8. ALMEIDA PRADO 46 [Concomitant]
     Indication: Product used for unknown indication
     Dosage: 1 UNITS NOS
     Route: 048
     Dates: start: 2015, end: 201909
  9. ONDANSETRON [Concomitant]
     Active Substance: ONDANSETRON
     Indication: Product used for unknown indication
     Route: 042
     Dates: start: 20181227, end: 20181227
  10. SODIUM CHLORIDE [Concomitant]
     Active Substance: SODIUM CHLORIDE
     Indication: Adverse event
     Route: 042
     Dates: start: 20181227, end: 20181228
  11. GLIFAGE [Concomitant]
     Active Substance: METFORMIN HYDROCHLORIDE
     Indication: Product used for unknown indication
     Dosage: 1000 MILLIGRAM
     Route: 048
     Dates: start: 2016, end: 20181227
  12. GOSERELIN [Concomitant]
     Active Substance: GOSERELIN
     Indication: Product used for unknown indication
     Dosage: 10.8 MILLIGRAM
     Route: 058
     Dates: start: 201509

REACTIONS (1)
  - Hyperglycaemia [Recovered/Resolved]

NARRATIVE: CASE EVENT DATE: 20181227
